FAERS Safety Report 13525823 (Version 1)
Quarter: 2017Q2

REPORT INFORMATION
  Report Type: Spontaneous
  Country: US (occurrence: US)
  Receive Date: 20170508
  Receipt Date: 20170508
  Transmission Date: 20170830
  Serious: Yes (Other)
  Sender: FDA-Public Use
  Company Number: None

PATIENT
  Age: 55 Year
  Sex: Male
  Weight: 86.71 kg

DRUGS (1)
  1. ADALIMUMAB 40MG/.8ML [Suspect]
     Active Substance: ADALIMUMAB
     Indication: PSORIATIC ARTHROPATHY
     Dosage: 40 MG Q 14 D SQ
     Route: 058
     Dates: start: 2014

REACTIONS (1)
  - Omental infarction [None]

NARRATIVE: CASE EVENT DATE: 20170414
